FAERS Safety Report 9517512 (Version 3)
Quarter: 2013Q4

REPORT INFORMATION
  Report Type: Spontaneous
  Country: US (occurrence: US)
  Receive Date: 20130911
  Receipt Date: 20131015
  Transmission Date: 20140711
  Serious: Yes (Hospitalization, Other)
  Sender: FDA-Public Use
  Company Number: US-BAXTER-2013BAX035562

PATIENT
  Age: 60 Year
  Sex: Male

DRUGS (3)
  1. DIANEAL LOW CALCIUM [Suspect]
     Indication: PERITONEAL DIALYSIS
     Route: 033
  2. DIANEAL LOW CALCIUM [Suspect]
     Indication: PERITONEAL DIALYSIS
     Route: 033
  3. EXTRANEAL [Suspect]
     Indication: PERITONEAL DIALYSIS
     Route: 033

REACTIONS (6)
  - Peripheral ischaemia [Not Recovered/Not Resolved]
  - Skin discolouration [Recovered/Resolved]
  - Skin ulcer [Not Recovered/Not Resolved]
  - Post procedural complication [Unknown]
  - Hypophagia [Not Recovered/Not Resolved]
  - Hypotension [Not Recovered/Not Resolved]
